FAERS Safety Report 14397965 (Version 1)
Quarter: 2018Q1

REPORT INFORMATION
  Report Type: Spontaneous
  Country: US (occurrence: US)
  Receive Date: 20180116
  Receipt Date: 20180116
  Transmission Date: 20180509
  Serious: No
  Sender: FDA-Public Use
  Company Number: US-ALLERGAN-1771559US

PATIENT
  Sex: Female

DRUGS (2)
  1. BOTOX COSMETIC [Suspect]
     Active Substance: ONABOTULINUMTOXINA
     Indication: PRODUCT USED FOR UNKNOWN INDICATION
     Dosage: UNK, SINGLE
     Route: 030
     Dates: start: 201705, end: 201705
  2. TYLENOL [Concomitant]
     Active Substance: ACETAMINOPHEN
     Indication: EYE PAIN
     Dosage: 2 DF, QD
     Route: 048

REACTIONS (1)
  - Headache [Recovered/Resolved]
